FAERS Safety Report 21773743 (Version 1)
Quarter: 2022Q4

REPORT INFORMATION
  Report Type: Report from Study
  Country: US (occurrence: US)
  Receive Date: 20221223
  Receipt Date: 20221223
  Transmission Date: 20230112
  Serious: No
  Sender: FDA-Public Use
  Company Number: US-ABBVIE-4210148

PATIENT
  Sex: Female

DRUGS (1)
  1. HUMIRA [Suspect]
     Active Substance: ADALIMUMAB
     Indication: Psoriatic arthropathy
     Dosage: CITRATE FREE?FORM STRENGTH: 40 MILLIGRAM
     Route: 058

REACTIONS (5)
  - Sinus disorder [Unknown]
  - Hypersensitivity [Recovering/Resolving]
  - Lacrimation increased [Unknown]
  - Eye pruritus [Unknown]
  - Throat irritation [Unknown]
